FAERS Safety Report 22042353 (Version 1)
Quarter: 2023Q1

REPORT INFORMATION
  Report Type: Spontaneous
  Country: US (occurrence: US)
  Receive Date: 20230227
  Receipt Date: 20230227
  Transmission Date: 20230417
  Serious: Yes (Other)
  Sender: FDA-Public Use
  Company Number: US-BEH-2023155661

PATIENT
  Age: 25 Year
  Sex: Female

DRUGS (17)
  1. PRIVIGEN [Suspect]
     Active Substance: HUMAN IMMUNOGLOBULIN G
     Indication: Dermatitis atopic
     Dosage: 40 GRAM, EVERY 28 DAYS
     Route: 042
  2. PRIVIGEN [Suspect]
     Active Substance: HUMAN IMMUNOGLOBULIN G
     Indication: Combined immunodeficiency
     Dosage: UNK
     Route: 042
     Dates: start: 20230215
  3. SYNTHROID [Concomitant]
     Active Substance: LEVOTHYROXINE SODIUM
  4. ACYCLOVIR [Concomitant]
     Active Substance: ACYCLOVIR
  5. FISH OIL [Concomitant]
     Active Substance: FISH OIL
  6. STRATTERA [Concomitant]
     Active Substance: ATOMOXETINE HYDROCHLORIDE
  7. DUPIXENT [Concomitant]
     Active Substance: DUPILUMAB
  8. VITAMIN C [Concomitant]
     Active Substance: ASCORBIC ACID
  9. CALCIUM MAGNESIUM [CALCIUM;MAGNESIUM] [Concomitant]
  10. IRON [Concomitant]
     Active Substance: IRON
  11. PROZAC [Concomitant]
     Active Substance: FLUOXETINE HYDROCHLORIDE
  12. WOMEN MULTI [Concomitant]
  13. BUSPIRONE HCL [Concomitant]
     Active Substance: BUSPIRONE HYDROCHLORIDE
  14. LYSINE [Concomitant]
     Active Substance: LYSINE
  15. PROBIOTICS NOS [Concomitant]
     Active Substance: PROBIOTICS NOS
     Dosage: UNK, QD
  16. GLUCOSAMINE CHONDROITIN [CHONDROITIN SULFATE;GLUCOSAMINE] [Concomitant]
  17. REVCOVI [ELAPEGADEMASE] [Concomitant]

REACTIONS (4)
  - Vein rupture [Unknown]
  - No adverse event [Unknown]
  - Incorrect dose administered [Unknown]
  - Off label use [Unknown]

NARRATIVE: CASE EVENT DATE: 20230215
